FAERS Safety Report 5169080-2 (Version None)
Quarter: 2006Q4

REPORT INFORMATION
  Report Type: 
  Country: None (occurrence: None)
  Receive Date: 20061201
  Receipt Date: 20061120
  Transmission Date: 20070319
  Serious: Yes (Hospitalization)
  Sender: FDA-Public Use
  Company Number: 2006BI015588

PATIENT
  Age: 49 Year
  Sex: Female

DRUGS (2)
  1. AVONEX [Suspect]
     Indication: MULTIPLE SCLEROSIS
     Dosage: 30 UG;QW;IM
     Route: 030
     Dates: start: 19960410, end: 20060401
  2. AVONEX [Suspect]
     Indication: MULTIPLE SCLEROSIS
     Dosage: 30 UG;QW;IM
     Route: 030
     Dates: start: 20060401

REACTIONS (8)
  - LIMB INJURY [None]
  - MOVEMENT DISORDER [None]
  - MULTIPLE SCLEROSIS RELAPSE [None]
  - NERVE INJURY [None]
  - POOR PERIPHERAL CIRCULATION [None]
  - ROAD TRAFFIC ACCIDENT [None]
  - TENDON DISORDER [None]
  - TENDON INJURY [None]
